FAERS Safety Report 25368102 (Version 1)
Quarter: 2025Q2

REPORT INFORMATION
  Report Type: Spontaneous
  Country: TW (occurrence: TW)
  Receive Date: 20250528
  Receipt Date: 20250528
  Transmission Date: 20250716
  Serious: Yes (Other)
  Sender: NOVARTIS
  Company Number: TW-002147023-NVSC2025TW082426

PATIENT
  Age: 44 Year
  Sex: Female

DRUGS (3)
  1. RIBOCICLIB [Suspect]
     Active Substance: RIBOCICLIB
     Indication: Breast cancer stage IV
     Route: 065
     Dates: start: 20191115
  2. LETROZOLE [Suspect]
     Active Substance: LETROZOLE
     Indication: Breast cancer stage IV
     Route: 065
     Dates: start: 20191115
  3. GOSERELIN [Suspect]
     Active Substance: GOSERELIN
     Indication: Breast cancer stage IV
     Route: 065
     Dates: start: 20191115

REACTIONS (6)
  - Breast cancer stage IV [Unknown]
  - Metastases to lung [Unknown]
  - Malignant neoplasm progression [Unknown]
  - Pericardial effusion [Unknown]
  - Pleural effusion [Recovered/Resolved]
  - Therapy partial responder [Unknown]
